APPROVED DRUG PRODUCT: LAMISIL
Active Ingredient: TERBINAFINE HYDROCHLORIDE
Strength: EQ 125MG BASE/PACKET
Dosage Form/Route: GRANULE;ORAL
Application: N022071 | Product #001
Applicant: NOVARTIS PHARMACEUTICALS CORP
Approved: Sep 28, 2007 | RLD: Yes | RS: No | Type: DISCN